FAERS Safety Report 24135528 (Version 2)
Quarter: 2024Q3

REPORT INFORMATION
  Report Type: Spontaneous
  Country: NL (occurrence: NL)
  Receive Date: 20240725
  Receipt Date: 20240819
  Transmission Date: 20241017
  Serious: Yes (Other)
  Sender: ACCORD
  Company Number: None

PATIENT
  Age: 61 Year
  Sex: Female

DRUGS (6)
  1. HYDROXYCHLOROQUINE [Interacting]
     Active Substance: HYDROXYCHLOROQUINE
     Indication: Arthritis
     Dosage: 1X PER DAY 1 TABLET
     Dates: start: 20240614, end: 20240620
  2. LACOSAMIDE [Interacting]
     Active Substance: LACOSAMIDE
     Indication: Epilepsy
     Dosage: TABLET, 50 MG (MILLIGRAM)
  3. ELIQUIS [Concomitant]
     Active Substance: APIXABAN
     Dosage: TABLET, 2,5 MG (MILLIGRAM), FILM-COATED TABLET
  4. BECLOMETHASONE DIPROPIONATE [Concomitant]
     Active Substance: BECLOMETHASONE DIPROPIONATE
     Dosage: AEROSOL, 100 MICROGRAM, AEROSOL 100 UG/DO
  5. ALBUTEROL [Concomitant]
     Active Substance: ALBUTEROL
     Dosage: AEROSOL, 100 MICROGRAM/DOSIS,
  6. LOSARTAN [Concomitant]
     Active Substance: LOSARTAN\LOSARTAN POTASSIUM
     Dosage: FILM-COATED TABLET, 50 MG

REACTIONS (2)
  - Epilepsy [Recovering/Resolving]
  - Drug interaction [Recovering/Resolving]
